FAERS Safety Report 18294278 (Version 1)
Quarter: 2020Q3

REPORT INFORMATION
  Report Type: Other
  Country: CA (occurrence: CA)
  Receive Date: 20200922
  Receipt Date: 20200922
  Transmission Date: 20201103
  Serious: Yes (Other)
  Sender: FDA-Public Use
  Company Number: CA-APOTEX-2020AP018043

PATIENT
  Age: 49 Year
  Sex: Male

DRUGS (4)
  1. ALLOPURINOL. [Suspect]
     Active Substance: ALLOPURINOL
     Indication: PRODUCT USED FOR UNKNOWN INDICATION
     Dosage: UNK
     Route: 065
  2. EPOETIN ALFA [Suspect]
     Active Substance: ERYTHROPOIETIN
     Indication: NEPHROGENIC ANAEMIA
     Dosage: 10000 INTERNATIONAL UNIT, T.I.W
     Route: 042
  3. EPOETIN ALFA [Suspect]
     Active Substance: ERYTHROPOIETIN
     Dosage: 12000 INTERNATIONAL UNIT
     Route: 042
  4. IRON [Suspect]
     Active Substance: IRON
     Indication: IRON DEFICIENCY ANAEMIA
     Dosage: UNK
     Route: 042

REACTIONS (2)
  - Aplasia pure red cell [Recovered/Resolved]
  - Anti-erythropoietin antibody negative [Recovered/Resolved]
